FAERS Safety Report 9698089 (Version 1)
Quarter: 2013Q4

REPORT INFORMATION
  Report Type: Report from Study
  Country: US (occurrence: US)
  Receive Date: 20131120
  Receipt Date: 20131120
  Transmission Date: 20140711
  Serious: Yes (Other)
  Sender: FDA-Public Use
  Company Number: US-ROCHE-1306281

PATIENT
  Sex: Male

DRUGS (3)
  1. LUCENTIS [Suspect]
     Indication: BLINDNESS
     Dosage: LEFT EYE
     Route: 065
  2. LUCENTIS [Suspect]
     Indication: EYE SWELLING
  3. INSULIN [Concomitant]

REACTIONS (3)
  - Blindness [Unknown]
  - Eye haemorrhage [Unknown]
  - No therapeutic response [Unknown]
